FAERS Safety Report 15022450 (Version 1)
Quarter: 2018Q2

REPORT INFORMATION
  Report Type: Spontaneous
  Country: IS (occurrence: IS)
  Receive Date: 20180618
  Receipt Date: 20180618
  Transmission Date: 20180711
  Serious: Yes (Hospitalization)
  Sender: FDA-Public Use
  Company Number: IND-IS-009507513-1806ISL003091

PATIENT
  Age: 75 Year
  Sex: Male
  Weight: 115 kg

DRUGS (17)
  1. ALLOPURINOL. [Concomitant]
     Active Substance: ALLOPURINOL
     Dosage: 100 MG X 2
  2. ASPIRIN. [Concomitant]
     Active Substance: ASPIRIN
     Dosage: 1X1
  3. WARFARIN SODIUM. [Concomitant]
     Active Substance: WARFARIN SODIUM
     Dosage: UNK
  4. SODIUM BICARBONATE. [Concomitant]
     Active Substance: SODIUM BICARBONATE
     Dosage: 1 G X 2
  5. BETOLVEX [Concomitant]
     Active Substance: CYANOCOBALAMIN
     Dosage: 1 MG X 1
  6. GABAPENTIN. [Concomitant]
     Active Substance: GABAPENTIN
     Dosage: 300 MG X 1
  7. MIMPARA [Concomitant]
     Active Substance: CINACALCET HYDROCHLORIDE
     Dosage: 30 MG X 1
  8. HYDROXYZINE [Concomitant]
     Active Substance: HYDROXYZINE HYDROCHLORIDE
     Dosage: 50 MG X 1
  9. STILNOCT [Concomitant]
     Active Substance: ZOLPIDEM TARTRATE
     Dosage: 10 MG VESP
  10. ARCOXIA [Suspect]
     Active Substance: ETORICOXIB
     Indication: GOUT
     Dosage: 1
     Route: 048
     Dates: start: 20180423, end: 20180430
  11. TRESIBA [Concomitant]
     Active Substance: INSULIN DEGLUDEC
     Dosage: 14 UNITS PER DAY
  12. RENVELA [Concomitant]
     Active Substance: SEVELAMER CARBONATE
     Dosage: 1600 MG / 2X3
  13. TRAJENTA [Concomitant]
     Active Substance: LINAGLIPTIN
     Dosage: 1
  14. ATACOR [Concomitant]
     Dosage: 20 MG X 1
  15. FURIX [Concomitant]
     Active Substance: FUROSEMIDE
     Dosage: 80 MG X 1
  16. ETALPHA [Concomitant]
     Active Substance: ALFACALCIDOL
     Dosage: 1
  17. GLIMERYL [Concomitant]
     Active Substance: GLIMEPIRIDE
     Dosage: 1

REACTIONS (2)
  - Anuria [Recovering/Resolving]
  - Acute kidney injury [Recovering/Resolving]

NARRATIVE: CASE EVENT DATE: 20180430
